FAERS Safety Report 8470152-5 (Version None)
Quarter: 2012Q2

REPORT INFORMATION
  Report Type: 
  Country: None (occurrence: None)
  Receive Date: 20120627
  Receipt Date: 20120614
  Transmission Date: 20120825
  Serious: Yes (Other)
  Sender: FDA-Public Use
  Company Number: AR-AMGEN-ARGSP2012038112

PATIENT
  Age: 50 Year
  Sex: Female
  Weight: 54 kg

DRUGS (2)
  1. ENBREL [Suspect]
     Indication: PSORIASIS
     Dosage: 100 MG, WEEKLY
     Dates: start: 20110713, end: 20111001
  2. ENBREL [Suspect]
     Dosage: 50 MG, WEEKLY
     Dates: start: 20111001, end: 20120503

REACTIONS (1)
  - BREAST CANCER [None]
